FAERS Safety Report 13874509 (Version 1)
Quarter: 2017Q3

REPORT INFORMATION
  Report Type: Spontaneous
  Country: US (occurrence: US)
  Receive Date: 20170816
  Receipt Date: 20170816
  Transmission Date: 20171127
  Serious: No
  Sender: FDA-Public Use
  Company Number: US-ROCHE-1087519

PATIENT
  Sex: Female

DRUGS (1)
  1. LUCENTIS [Suspect]
     Active Substance: RANIBIZUMAB
     Indication: PRODUCT USED FOR UNKNOWN INDICATION
     Route: 065

REACTIONS (7)
  - Influenza like illness [Unknown]
  - Carpal tunnel syndrome [Unknown]
  - Eye pain [Unknown]
  - Ear infection [Unknown]
  - Rhinitis [Unknown]
  - Pharyngitis [Unknown]
  - Blood pressure fluctuation [Unknown]
